FAERS Safety Report 6678654-9 (Version None)
Quarter: 2010Q2

REPORT INFORMATION
  Report Type: 
  Country: None (occurrence: None)
  Receive Date: 20100413
  Receipt Date: 20100401
  Transmission Date: 20101027
  Serious: Yes (Death, Other)
  Sender: FDA-Public Use
  Company Number: US-PFIZER INC-2010042295

PATIENT
  Sex: Male

DRUGS (2)
  1. VFEND [Suspect]
     Dosage: UNK
  2. ZYVOX [Suspect]
     Dosage: 600 MG, 2X/DAY
     Route: 042
     Dates: start: 20100301

REACTIONS (1)
  - DEATH [None]
